FAERS Safety Report 9532180 (Version 2)
Quarter: 2013Q3

REPORT INFORMATION
  Report Type: Spontaneous
  Country: DE (occurrence: DE)
  Receive Date: 20130918
  Receipt Date: 20130919
  Transmission Date: 20140515
  Serious: Yes (Hospitalization)
  Sender: FDA-Public Use
  Company Number: DE-BAYER-2013-108213

PATIENT
  Age: 64 Year
  Sex: Female

DRUGS (1)
  1. CIPROBAY [Suspect]

REACTIONS (5)
  - Blood creatinine increased [None]
  - Renal failure acute [None]
  - Haemoglobin decreased [None]
  - Liver function test abnormal [None]
  - Hepatic steatosis [None]
